FAERS Safety Report 6465462-7 (Version None)
Quarter: 2009Q4

REPORT INFORMATION
  Report Type: 
  Country: None (occurrence: None)
  Receive Date: 20091201
  Receipt Date: 20090825
  Transmission Date: 20100525
  Serious: No
  Sender: FDA-Public Use
  Company Number: US-AMGEN-KDL307713

PATIENT
  Sex: Male

DRUGS (4)
  1. ENBREL [Suspect]
     Indication: PSORIASIS
     Route: 058
     Dates: start: 20080410
  2. TRIAMCINOLONE [Concomitant]
  3. MULTI-VITAMINS [Concomitant]
  4. CLOBETASOL PROPIONATE [Concomitant]

REACTIONS (4)
  - DECREASED APPETITE [None]
  - DIZZINESS [None]
  - HYPERTENSION [None]
  - NAUSEA [None]
